FAERS Safety Report 8095340-1 (Version None)
Quarter: 2012Q1

REPORT INFORMATION
  Report Type: 
  Country: None (occurrence: None)
  Receive Date: 20120125
  Receipt Date: 20120117
  Transmission Date: 20120608
  Serious: Yes (Hospitalization)
  Sender: FDA-Public Use
  Company Number: B0776263A

PATIENT
  Age: 18 Year
  Sex: Female

DRUGS (2)
  1. INSULIN (INSULIN) [Suspect]
     Indication: PRODUCT USED FOR UNKNOWN INDICATION
  2. PROPRANOLOL HYDROCHLORIDE [Suspect]
     Indication: PRODUCT USED FOR UNKNOWN INDICATION

REACTIONS (6)
  - CARDIOGENIC SHOCK [None]
  - INCORRECT DOSE ADMINISTERED [None]
  - HYPOKALAEMIA [None]
  - TOXICITY TO VARIOUS AGENTS [None]
  - OVERDOSE [None]
  - HYPOGLYCAEMIA [None]
